FAERS Safety Report 4715805-7 (Version None)
Quarter: 2005Q3

REPORT INFORMATION
  Report Type: 
  Country: None (occurrence: None)
  Receive Date: 20050715
  Receipt Date: 20050715
  Transmission Date: 20060218
  Serious: No
  Sender: FDA-Public Use
  Company Number: None

PATIENT
  Age: 44 Year
  Sex: Female
  Weight: 74.8435 kg

DRUGS (2)
  1. CIPROFLOXACIN [Suspect]
     Indication: DIVERTICULITIS
     Dosage: 500 MG 2X PER DAY ORAL
     Route: 048
     Dates: start: 20050705, end: 20050713
  2. METRONIDAZOLE [Concomitant]

REACTIONS (12)
  - ANORECTAL DISORDER [None]
  - ANXIETY [None]
  - CHROMATURIA [None]
  - CONFUSIONAL STATE [None]
  - DEPRESSION [None]
  - INSOMNIA [None]
  - PANIC ATTACK [None]
  - RESTLESSNESS [None]
  - SLEEP TERROR [None]
  - SPEECH DISORDER [None]
  - URETHRAL DISORDER [None]
  - VULVOVAGINAL DISCOMFORT [None]
